FAERS Safety Report 7628503-7 (Version None)
Quarter: 2011Q3

REPORT INFORMATION
  Report Type: 
  Country: None (occurrence: None)
  Receive Date: 20110721
  Receipt Date: 20110721
  Transmission Date: 20111222
  Serious: Yes (Hospitalization)
  Sender: FDA-Public Use
  Company Number: None

PATIENT
  Age: 63 Year
  Sex: Male
  Weight: 64.5 kg

DRUGS (1)
  1. WARFARIN SODIUM [Suspect]
     Dosage: 5 MG OTHER PO
     Route: 048
     Dates: start: 20090318

REACTIONS (2)
  - HAEMORRHAGE [None]
  - HAEMATURIA [None]
